FAERS Safety Report 9425195 (Version 2)
Quarter: 2013Q3

REPORT INFORMATION
  Report Type: Spontaneous
  Country: US (occurrence: US)
  Receive Date: 20130729
  Receipt Date: 20130812
  Transmission Date: 20140515
  Serious: No
  Sender: FDA-Public Use
  Company Number: US-009507513-1307USA004582

PATIENT
  Age: 55 Year
  Sex: Male
  Weight: 81.63 kg

DRUGS (7)
  1. VICTRELIS [Suspect]
     Dosage: 800 MG, TID, 4 CAPSULES 3 TIMES A DAY
     Route: 048
  2. PEGASYS [Suspect]
     Dosage: 180 MCG/M
     Route: 058
  3. REBETOL [Suspect]
     Dosage: UNK MG, UNK
     Route: 048
  4. ANDROGEL [Concomitant]
     Route: 048
  5. WELLBUTRIN [Concomitant]
     Dosage: 200 MG, SR
     Route: 048
  6. REBETOL [Suspect]
     Dosage: 1 TABLET, QAM
     Route: 048
  7. REBETOL [Suspect]
     Dosage: 2 TABLETS, QPM
     Route: 048

REACTIONS (3)
  - Anaemia [Unknown]
  - Anaemia [Unknown]
  - Dysgeusia [Unknown]
